FAERS Safety Report 8646330 (Version 3)
Quarter: 2013Q3

REPORT INFORMATION
  Report Type: Spontaneous
  Country: JP (occurrence: JP)
  Receive Date: 20120702
  Receipt Date: 20130702
  Transmission Date: 20140515
  Serious: No
  Sender: FDA-Public Use
  Company Number: JP-ABBOTT-12P-087-0950507-00

PATIENT
  Age: 16 Year
  Sex: Male

DRUGS (6)
  1. HUMIRA 40 MG/ 0.8 ML PRE-FILLED SYRINGE [Suspect]
     Indication: CROHN^S DISEASE
     Route: 058
     Dates: start: 20120518, end: 20120518
  2. HUMIRA 40 MG/ 0.8 ML PRE-FILLED SYRINGE [Suspect]
     Dates: start: 20120612
  3. MESALAZINE [Concomitant]
     Indication: CROHN^S DISEASE
     Route: 048
  4. AZATHIOPRINE [Concomitant]
     Indication: CROHN^S DISEASE
     Route: 048
  5. CLOSTRIDIUM BUTYRICUM [Concomitant]
     Indication: CROHN^S DISEASE
     Route: 048
  6. POLAPREZINC [Concomitant]
     Indication: CROHN^S DISEASE
     Route: 048

REACTIONS (2)
  - Anal abscess [Recovering/Resolving]
  - Crohn^s disease [Unknown]
